FAERS Safety Report 6053886-1 (Version None)
Quarter: 2009Q1

REPORT INFORMATION
  Report Type: 
  Country: None (occurrence: None)
  Receive Date: 20090123
  Receipt Date: 20090115
  Transmission Date: 20090719
  Serious: Yes (Other)
  Sender: FDA-Public Use
  Company Number: MOZO-1000151

PATIENT
  Age: 20 Year
  Sex: Male

DRUGS (2)
  1. MOZOBIL [Suspect]
     Indication: HAEMATOPOIETIC STEM CELL MOBILISATION
  2. THIOTEPA [Concomitant]

REACTIONS (1)
  - ENGRAFT FAILURE [None]
